FAERS Safety Report 13168512 (Version 1)
Quarter: 2017Q1

REPORT INFORMATION
  Report Type: Spontaneous
  Country: US (occurrence: US)
  Receive Date: 20170131
  Receipt Date: 20170131
  Transmission Date: 20170428
  Serious: No
  Sender: FDA-Public Use
  Company Number: US-GLAXOSMITHKLINE-US2017012037

PATIENT
  Age: 78 Year
  Sex: Male

DRUGS (2)
  1. MORPHINE [Suspect]
     Active Substance: MORPHINE
     Indication: BACK DISORDER
     Dosage: UNK
  2. ALLI [Suspect]
     Active Substance: ORLISTAT
     Indication: CHANGE OF BOWEL HABIT
     Dosage: UNK

REACTIONS (3)
  - Therapeutic response unexpected [Unknown]
  - Constipation [Unknown]
  - Off label use [Unknown]
